FAERS Safety Report 13659363 (Version 1)
Quarter: 2017Q2

REPORT INFORMATION
  Report Type: Spontaneous
  Country: IT (occurrence: IT)
  Receive Date: 20170616
  Receipt Date: 20170616
  Transmission Date: 20170830
  Serious: Yes (Life-Threatening)
  Sender: FDA-Public Use
  Company Number: IT-FRESENIUS KABI-FK201705051

PATIENT
  Age: 25 Year
  Sex: Male

DRUGS (2)
  1. METOCLOPRAMIDE (MANUFACTURER UNKNOWN) [Suspect]
     Active Substance: METOCLOPRAMIDE
     Indication: NAUSEA
     Route: 042
  2. METOCLOPRAMIDE (MANUFACTURER UNKNOWN) [Suspect]
     Active Substance: METOCLOPRAMIDE
     Indication: VOMITING

REACTIONS (3)
  - Myocarditis [Unknown]
  - Cardiac failure [Recovering/Resolving]
  - Acute pulmonary oedema [Unknown]
